FAERS Safety Report 7338575-5 (Version None)
Quarter: 2011Q1

REPORT INFORMATION
  Report Type: 
  Country: None (occurrence: None)
  Receive Date: 20110308
  Receipt Date: 20110223
  Transmission Date: 20110831
  Serious: Yes (Other)
  Sender: FDA-Public Use
  Company Number: GB-ELI_LILLY_AND_COMPANY-GB201102006999

PATIENT
  Sex: Female

DRUGS (1)
  1. ZYPREXA [Suspect]
     Dates: start: 20090901

REACTIONS (1)
  - LOWER RESPIRATORY TRACT INFECTION [None]
